FAERS Safety Report 5982167-7 (Version None)
Quarter: 2008Q4

REPORT INFORMATION
  Report Type: 
  Country: None (occurrence: None)
  Receive Date: 20081208
  Receipt Date: 20081121
  Transmission Date: 20090506
  Serious: Yes (Hospitalization)
  Sender: FDA-Public Use
  Company Number: US-BAYER-200831029NA

PATIENT
  Age: 40 Year
  Sex: Female
  Weight: 91 kg

DRUGS (5)
  1. BETASERON [Suspect]
     Indication: RELAPSING-REMITTING MULTIPLE SCLEROSIS
     Dosage: TOTAL DAILY DOSE: 8 MIU
     Route: 058
     Dates: start: 20061201, end: 20071201
  2. VALIUM [Concomitant]
     Indication: VERTIGO
     Dosage: AS USED: 10 MG
     Route: 048
     Dates: start: 20071101
  3. GABAPENTIN [Concomitant]
     Indication: NEURALGIA
     Dosage: AS USED: 400 MG
     Route: 048
     Dates: start: 20061001
  4. LEXAPRO [Concomitant]
     Indication: DEPRESSION
     Dosage: TOTAL DAILY DOSE: 20 MG
     Route: 048
     Dates: start: 20071001
  5. HYDROCODONE BITARTRATE AND ACETAMINOPHEN [Concomitant]
     Indication: PAIN
     Dosage: UNIT DOSE: 1 DF
     Route: 048
     Dates: start: 20060501

REACTIONS (5)
  - BACK DISORDER [None]
  - COGNITIVE DISORDER [None]
  - HYPOAESTHESIA [None]
  - MULTIPLE SCLEROSIS [None]
  - PAIN IN EXTREMITY [None]
